FAERS Safety Report 15756981 (Version 4)
Quarter: 2019Q1

REPORT INFORMATION
  Report Type: Spontaneous
  Country: BE (occurrence: BE)
  Receive Date: 20181224
  Receipt Date: 20190115
  Transmission Date: 20190417
  Serious: Yes (Death, Other)
  Sender: FDA-Public Use
  Company Number: BE-ASTRAZENECA-2018SF63845

PATIENT
  Age: 29227 Day
  Sex: Male
  Weight: 41 kg

DRUGS (6)
  1. MEDROL [Concomitant]
     Active Substance: METHYLPREDNISOLONE
     Dosage: 8.0MG UNKNOWN
  2. CONTRAMAL RETARD [Concomitant]
  3. RANOMAX [Concomitant]
  4. TAGRISSO [Suspect]
     Active Substance: OSIMERTINIB
     Indication: NON-SMALL CELL LUNG CANCER
     Dosage: 80.0MG UNKNOWN
     Route: 048
     Dates: start: 201810
  5. LITHIUM. [Concomitant]
     Active Substance: LITHIUM
     Dosage: 200/400 MG DAILY
  6. PANTOMED [Concomitant]

REACTIONS (5)
  - Dehydration [Unknown]
  - Cardiac disorder [Fatal]
  - Acute kidney injury [Unknown]
  - Cachexia [Unknown]
  - Metabolic disorder [Fatal]

NARRATIVE: CASE EVENT DATE: 20181230
